FAERS Safety Report 5923604-3 (Version None)
Quarter: 2008Q3

REPORT INFORMATION
  Report Type: 
  Country: None (occurrence: None)
  Receive Date: 20080909
  Receipt Date: 20080416
  Transmission Date: 20090109
  Serious: Yes (Hospitalization)
  Sender: FDA-Public Use
  Company Number: 163-20785-08040182

PATIENT
  Age: 66 Year
  Sex: Male
  Weight: 111.3 kg

DRUGS (34)
  1. THALOMID [Suspect]
     Indication: MULTIPLE MYELOMA
     Dosage: 200-100MG ; 200-100MG ; 50 MG, DAILY, ORAL
     Route: 048
     Dates: start: 20040921, end: 20060124
  2. THALOMID [Suspect]
     Indication: MULTIPLE MYELOMA
     Dosage: 200-100MG ; 200-100MG ; 50 MG, DAILY, ORAL
     Route: 048
     Dates: start: 20051101
  3. THALOMID [Suspect]
     Indication: MULTIPLE MYELOMA
     Dosage: 200-100MG ; 200-100MG ; 50 MG, DAILY, ORAL
     Route: 048
     Dates: start: 20060130
  4. DEXAMETHASONE TAB [Suspect]
     Indication: MULTIPLE MYELOMA
     Dosage: 40 MG ; 20 MG ; 4 MG, 5 TABS ON DAYS 1-4 EVERY 21 DAYS, ORAL
     Route: 048
     Dates: end: 20060120
  5. DEXAMETHASONE TAB [Suspect]
     Indication: MULTIPLE MYELOMA
     Dosage: 40 MG ; 20 MG ; 4 MG, 5 TABS ON DAYS 1-4 EVERY 21 DAYS, ORAL
     Route: 048
     Dates: start: 20040921
  6. DEXAMETHASONE TAB [Suspect]
     Indication: MULTIPLE MYELOMA
     Dosage: 40 MG ; 20 MG ; 4 MG, 5 TABS ON DAYS 1-4 EVERY 21 DAYS, ORAL
     Route: 048
     Dates: start: 20051101
  7. DEXAMETHASONE TAB [Suspect]
     Indication: MULTIPLE MYELOMA
     Dosage: 40 MG ; 20 MG ; 4 MG, 5 TABS ON DAYS 1-4 EVERY 21 DAYS, ORAL
     Route: 048
     Dates: start: 20060221
  8. VELCADE [Suspect]
     Indication: MULTIPLE MYELOMA
     Dosage: 1 MG/M2 ; 0.8 MG/M2
     Dates: start: 20040918, end: 20060206
  9. VELCADE [Suspect]
     Indication: MULTIPLE MYELOMA
     Dosage: 1 MG/M2 ; 0.8 MG/M2
     Dates: start: 20060221
  10. CISPLATIN [Suspect]
     Indication: MULTIPLE MYELOMA
     Dosage: 10 MG/M2 ; 7.5 MG/M2
     Dates: end: 20050829
  11. CISPLATIN [Suspect]
     Indication: MULTIPLE MYELOMA
     Dosage: 10 MG/M2 ; 7.5 MG/M2
     Dates: start: 20040921
  12. ADRIAMYCIN PFS [Suspect]
     Indication: MULTIPLE MYELOMA
     Dosage: 10 MG/M2 ; 7.5 MG/M2
     Dates: end: 20050829
  13. ADRIAMYCIN PFS [Suspect]
     Indication: MULTIPLE MYELOMA
     Dosage: 10 MG/M2 ; 7.5 MG/M2
     Dates: start: 20040921
  14. CYCLOPHOSPHAMIDE [Suspect]
     Indication: MULTIPLE MYELOMA
     Dosage: 400 MG/M2; 300 MG/M2
     Dates: end: 20050829
  15. CYCLOPHOSPHAMIDE [Suspect]
     Indication: MULTIPLE MYELOMA
     Dosage: 400 MG/M2; 300 MG/M2
     Dates: start: 20040921
  16. ETOPOSIDE [Suspect]
     Indication: MULTIPLE MYELOMA
     Dosage: 40 MG/M2 ; 30 MG/M2
     Dates: end: 20050829
  17. ETOPOSIDE [Suspect]
     Indication: MULTIPLE MYELOMA
     Dosage: 40 MG/M2 ; 30 MG/M2
     Dates: start: 20040921
  18. MELPHALAN (MELPHALAN) [Suspect]
     Indication: MULTIPLE MYELOMA
     Dosage: 200 MG/M2 ; 200 MG/M2
     Dates: end: 20050303
  19. MELPHALAN (MELPHALAN) [Suspect]
     Indication: MULTIPLE MYELOMA
     Dosage: 200 MG/M2 ; 200 MG/M2
     Dates: start: 20041209
  20. ACYCLOVIR (ACICLOVIR) (TABLETS) [Concomitant]
  21. LEVAQUIN [Concomitant]
  22. CALCIUM CARBONATE (CALCIUM CARBONATE) (TABLETS) [Concomitant]
  23. TERAZOSIN HCL [Concomitant]
  24. FLOMAX [Concomitant]
  25. CARDIZEM CD (DILTIAZEM HYDROCHLORIDE) (CAPSULES) [Concomitant]
  26. FOLIC ACID (FOLIC ACID) (TABLETS) [Concomitant]
  27. REGLAN (METOCLOPRAMIDE) (TABLETS) [Concomitant]
  28. MULTIVITAMINS (MULTIVITAMINS) (TABLETS) [Suspect]
  29. DOSS (COLOXYL WITH DANTHRON) (CAPSULES) [Concomitant]
  30. EPOGEN [Concomitant]
  31. LOVENOX [Concomitant]
  32. VALTREX (VALACICLOVIR HYDROCHLORIDE) (TABLETS) [Concomitant]
  33. PROSCAR (FINASTERIDE) (TABLETS) [Concomitant]
  34. ZANTAC (RANITIDINE HYDROCHLORIDE) (TABLETS) [Concomitant]

REACTIONS (1)
  - CELLULITIS [None]
